FAERS Safety Report 9751670 (Version 2)
Quarter: 2014Q1

REPORT INFORMATION
  Report Type: Spontaneous
  Country: US (occurrence: US)
  Receive Date: 20131213
  Receipt Date: 20140220
  Transmission Date: 20141002
  Serious: Yes (Other)
  Sender: FDA-Public Use
  Company Number: US-AMGEN-USASP2013087092

PATIENT
  Age: 35 Year
  Sex: Female
  Weight: 61.68 kg

DRUGS (6)
  1. ENBREL [Suspect]
     Indication: PRODUCT USED FOR UNKNOWN INDICATION
     Dosage: 50 MG, QWK
     Route: 058
     Dates: start: 1997
  2. PREDNISONE [Concomitant]
     Dosage: 1 MG, UNK
  3. AMITRIPTYLIN [Concomitant]
     Dosage: 10 MG, UNK
  4. OMEPRAZOLE [Concomitant]
     Dosage: 20 MG, UNK
  5. CALCIUM [Concomitant]
     Dosage: 500 UNK, UNK
  6. PRENATAL RX 1 [Concomitant]
     Dosage: UNK

REACTIONS (3)
  - Pneumonia [Recovered/Resolved]
  - Ileal ulcer [Unknown]
  - Rhinorrhoea [Unknown]
